FAERS Safety Report 7069459-8 (Version None)
Quarter: 2010Q4

REPORT INFORMATION
  Report Type: 
  Country: None (occurrence: None)
  Receive Date: 20101028
  Receipt Date: 20101020
  Transmission Date: 20110411
  Serious: Yes (Hospitalization)
  Sender: FDA-Public Use
  Company Number: US-GILEAD-2010-0032794

PATIENT
  Sex: Female
  Weight: 72.64 kg

DRUGS (19)
  1. LETAIRIS [Suspect]
     Indication: PULMONARY ARTERIAL HYPERTENSION
     Route: 048
     Dates: start: 20091125
  2. REVATIO [Concomitant]
  3. METOLAZONE [Concomitant]
  4. NORVASC [Concomitant]
  5. HYDROCODONE BITARTRATE AND ACETAMINOPHEN [Concomitant]
  6. CELLCEPT [Concomitant]
  7. OXYGEN [Concomitant]
  8. FUROSEMIDE [Concomitant]
  9. ALPRAZOLAM [Concomitant]
  10. AVELOX [Concomitant]
  11. ALBUTEROL [Concomitant]
  12. PREDNISONE [Concomitant]
  13. METHADONE [Concomitant]
  14. LYRICA [Concomitant]
  15. TRAMADOL HCL [Concomitant]
  16. NIFEDICAL [Concomitant]
  17. VITAMIN D [Concomitant]
  18. CELEXA [Concomitant]
  19. NITROGLYCERIN [Concomitant]

REACTIONS (4)
  - NON-CARDIAC CHEST PAIN [None]
  - OEDEMA PERIPHERAL [None]
  - PALPITATIONS [None]
  - PRESYNCOPE [None]
